FAERS Safety Report 25448325 (Version 2)
Quarter: 2025Q3

REPORT INFORMATION
  Report Type: Spontaneous
  Country: JP (occurrence: JP)
  Receive Date: 20250617
  Receipt Date: 20250910
  Transmission Date: 20251020
  Serious: Yes (Hospitalization)
  Sender: NOVARTIS
  Company Number: JP-002147023-NVSJ2025JP006361

PATIENT
  Age: 10 Decade
  Sex: Female

DRUGS (1)
  1. ENTRESTO [Suspect]
     Active Substance: SACUBITRIL\VALSARTAN
     Indication: Hypertension
     Dosage: 300 MG, QD,IN THE MORNING
     Route: 048

REACTIONS (3)
  - Hypokalaemia [Recovering/Resolving]
  - Malaise [Unknown]
  - Decreased appetite [Unknown]
